FAERS Safety Report 13020156 (Version 2)
Quarter: 2019Q1

REPORT INFORMATION
  Report Type: Spontaneous
  Country: AU (occurrence: AU)
  Receive Date: 20161212
  Receipt Date: 20190103
  Transmission Date: 20190417
  Serious: Yes (Other)
  Sender: FDA-Public Use
  Company Number: AU-BIOMARINAP-AU-2016-112114

PATIENT
  Age: 21 Year
  Sex: Male

DRUGS (1)
  1. ALDURAZYME [Suspect]
     Active Substance: LARONIDASE
     Indication: MUCOPOLYSACCHARIDOSIS I
     Dosage: 0.58 MICROGRAM/KILOGRAM
     Route: 065

REACTIONS (4)
  - Corneal opacity [Unknown]
  - Maculopathy [Unknown]
  - Retinal degeneration [Unknown]
  - Retinal disorder [Unknown]
